FAERS Safety Report 8274491-2 (Version None)
Quarter: 2012Q2

REPORT INFORMATION
  Report Type: 
  Country: None (occurrence: None)
  Receive Date: 20120411
  Receipt Date: 20120326
  Transmission Date: 20120825
  Serious: Yes (Hospitalization, Other)
  Sender: FDA-Public Use
  Company Number: US-ROCHE-769891

PATIENT
  Sex: Male
  Weight: 79.4 kg

DRUGS (1)
  1. ACCUTANE [Suspect]
     Indication: ACNE
     Route: 048
     Dates: start: 20040816, end: 20050101

REACTIONS (8)
  - ANAL FISTULA [None]
  - ANAL HAEMORRHAGE [None]
  - ALANINE AMINOTRANSFERASE INCREASED [None]
  - RECTAL HAEMORRHAGE [None]
  - BLOOD ALKALINE PHOSPHATASE INCREASED [None]
  - COLITIS ULCERATIVE [None]
  - DEPRESSION [None]
  - HAEMOGLOBIN DECREASED [None]
